FAERS Safety Report 5766871-1 (Version None)
Quarter: 2008Q2

REPORT INFORMATION
  Report Type: 
  Country: None (occurrence: None)
  Receive Date: 20080612
  Receipt Date: 20080603
  Transmission Date: 20081010
  Serious: Yes (Hospitalization)
  Sender: FDA-Public Use
  Company Number: TH-AMGEN-US284800

PATIENT
  Age: 59 Year
  Sex: Female

DRUGS (1)
  1. NEULASTIM [Suspect]
     Indication: CHEMOTHERAPY
     Route: 058
     Dates: start: 20070320

REACTIONS (1)
  - FEBRILE NEUTROPENIA [None]
